FAERS Safety Report 7325214-2 (Version None)
Quarter: 2011Q1

REPORT INFORMATION
  Report Type: 
  Country: None (occurrence: None)
  Receive Date: 20110302
  Receipt Date: 20110222
  Transmission Date: 20110831
  Serious: No
  Sender: FDA-Public Use
  Company Number: US-PFIZER INC-2011038780

PATIENT
  Sex: Male

DRUGS (3)
  1. XANAX [Concomitant]
     Indication: HYPERTENSION
     Dosage: 0.25 MG, 3X/DAY
     Route: 048
  2. EFFEXOR [Suspect]
     Dosage: UNK
     Route: 048
     Dates: start: 20060101
  3. ZYPREXA [Concomitant]
     Dosage: 5 MG, 1X/DAY

REACTIONS (3)
  - HOT FLUSH [None]
  - BLOOD TRIGLYCERIDES DECREASED [None]
  - HYPERHIDROSIS [None]
